FAERS Safety Report 5524704-2 (Version None)
Quarter: 2007Q4

REPORT INFORMATION
  Report Type: 
  Country: None (occurrence: None)
  Receive Date: 20071123
  Receipt Date: 20071120
  Transmission Date: 20080405
  Serious: Yes (Other)
  Sender: FDA-Public Use
  Company Number: PHEH2007US12978

PATIENT
  Sex: Male

DRUGS (2)
  1. ENABLEX [Suspect]
     Indication: HYPERTONIC BLADDER
     Dosage: 7.5 MG, QD
     Route: 048
  2. AVODART [Concomitant]

REACTIONS (2)
  - CONDITION AGGRAVATED [None]
  - URINARY RETENTION [None]
